FAERS Safety Report 4313219-5 (Version None)
Quarter: 2004Q1

REPORT INFORMATION
  Report Type: 
  Country: None (occurrence: None)
  Receive Date: 20040304
  Receipt Date: 20040225
  Transmission Date: 20041129
  Serious: Yes (Hospitalization)
  Sender: FDA-Public Use
  Company Number: OPTN-PR-0402S-0003

PATIENT
  Sex: Male

DRUGS (9)
  1. OPTISON [Suspect]
     Indication: CARDIAC FUNCTION TEST ABNORMAL
     Dosage: 5 ML OF 3 ML OPTISON DILUTED IN 7 ML SALINE, SINGLE DOSE, I.V.
     Route: 042
     Dates: start: 24000225, end: 20040225
  2. PANTOPRAZOLE [Concomitant]
  3. ATROPINE [Concomitant]
  4. CEFAZOLIN [Concomitant]
  5. MORPHINE SULFATE [Concomitant]
  6. DOPAMINE HCL [Concomitant]
  7. GLYCERYL TRINITRATE [Concomitant]
  8. SODIUM NITROPRUSSIDE [Concomitant]
  9. PROPRANOLOL [Concomitant]

REACTIONS (2)
  - CARDIAC PROCEDURE COMPLICATION [None]
  - HYPOXIA [None]
